FAERS Safety Report 15792567 (Version 1)
Quarter: 2019Q1

REPORT INFORMATION
  Report Type: Report from Study
  Country: US (occurrence: US)
  Receive Date: 20190107
  Receipt Date: 20190107
  Transmission Date: 20190417
  Serious: Yes (Other)
  Sender: FDA-Public Use
  Company Number: US-AUROBINDO-AUR-APL-2019-000113

PATIENT
  Age: 38 Year
  Sex: Male

DRUGS (4)
  1. PREDNISONE. [Suspect]
     Active Substance: PREDNISONE
     Indication: RETINAL VASCULITIS
  2. PREDNISONE. [Suspect]
     Active Substance: PREDNISONE
     Indication: IRIDOCYCLITIS
     Dosage: UNK
     Route: 048
  3. DAPSONE. [Suspect]
     Active Substance: DAPSONE
     Indication: RETINAL VASCULITIS
  4. DAPSONE. [Suspect]
     Active Substance: DAPSONE
     Indication: IRIDOCYCLITIS
     Dosage: UNK
     Route: 065

REACTIONS (1)
  - Histoplasmosis [Unknown]
